FAERS Safety Report 8193127-2 (Version None)
Quarter: 2012Q1

REPORT INFORMATION
  Report Type: 
  Country: None (occurrence: None)
  Receive Date: 20120308
  Receipt Date: 20120308
  Transmission Date: 20120608
  Serious: Yes (Other)
  Sender: FDA-Public Use
  Company Number: None

PATIENT
  Age: 35 Year
  Sex: Female
  Weight: 62.142 kg

DRUGS (1)
  1. DYSPORT [Suspect]
     Indication: TORTICOLLIS
     Dosage: 237.5 UNITS
     Route: 030

REACTIONS (6)
  - PYREXIA [None]
  - JOINT RANGE OF MOTION DECREASED [None]
  - IMPAIRED DRIVING ABILITY [None]
  - REFUSAL OF TREATMENT BY PATIENT [None]
  - LOCAL SWELLING [None]
  - NECK PAIN [None]
